FAERS Safety Report 25596996 (Version 1)
Quarter: 2025Q3

REPORT INFORMATION
  Report Type: Spontaneous
  Country: US (occurrence: US)
  Receive Date: 20250723
  Receipt Date: 20250723
  Transmission Date: 20251021
  Serious: No
  Sender: TEVA
  Company Number: US-TEVA-VS-3351938

PATIENT
  Age: 53 Year
  Sex: Female

DRUGS (1)
  1. MIMVEY [Suspect]
     Active Substance: ESTRADIOL\NORETHINDRONE ACETATE
     Indication: Product used for unknown indication
     Route: 048
     Dates: start: 20250528, end: 20250704

REACTIONS (3)
  - Anxiety [Not Recovered/Not Resolved]
  - Panic attack [Unknown]
  - Stress [Unknown]
